FAERS Safety Report 5750899-1 (Version None)
Quarter: 2008Q2

REPORT INFORMATION
  Report Type: 
  Country: None (occurrence: None)
  Receive Date: 20080528
  Receipt Date: 20080520
  Transmission Date: 20081010
  Serious: Yes (Death, Life-Threatening, Hospitalization)
  Sender: FDA-Public Use
  Company Number: DE-ROCHE-556719

PATIENT
  Age: 47 Year
  Sex: Male
  Weight: 53 kg

DRUGS (2)
  1. VALGANCICLOVIR HCL [Suspect]
     Dosage: FREQUENCY: 2 TABLETS IN THE MORNING.
     Route: 048
     Dates: start: 20071113
  2. TACROLIMUS [Suspect]
     Route: 065

REACTIONS (2)
  - DEATH [None]
  - MYOPATHY [None]
